FAERS Safety Report 19149272 (Version 2)
Quarter: 2021Q2

REPORT INFORMATION
  Report Type: Spontaneous
  Country: US (occurrence: US)
  Receive Date: 20210416
  Receipt Date: 20210512
  Transmission Date: 20210717
  Serious: Yes (Other)
  Sender: FDA-Public Use
  Company Number: US-SUNOVION-2021SUN001308

PATIENT
  Age: 48 Year
  Sex: Male
  Weight: 81.63 kg

DRUGS (5)
  1. LATUDA [Suspect]
     Active Substance: LURASIDONE HYDROCHLORIDE
     Indication: BIPOLAR II DISORDER
     Dosage: 20 MG
     Route: 048
     Dates: start: 20210423
  2. LATUDA [Suspect]
     Active Substance: LURASIDONE HYDROCHLORIDE
     Dosage: 40 MG
     Route: 048
     Dates: end: 20210423
  3. LATUDA [Suspect]
     Active Substance: LURASIDONE HYDROCHLORIDE
     Dosage: 20 MG, QD
     Route: 048
     Dates: start: 20210320
  4. METHADONE [Concomitant]
     Active Substance: METHADONE HYDROCHLORIDE
     Indication: DRUG ABUSE
     Dosage: UNK
  5. LISINOPRIL. [Concomitant]
     Active Substance: LISINOPRIL
     Dosage: UNK

REACTIONS (11)
  - Abnormal dreams [Unknown]
  - Anxiety [Unknown]
  - Off label use [Unknown]
  - Confusional state [Unknown]
  - Blood pressure increased [Unknown]
  - Drug ineffective [Unknown]
  - Anger [Unknown]
  - Aggression [Unknown]
  - Dystonia [Unknown]
  - Nightmare [Recovered/Resolved]
  - Weight increased [Unknown]
